FAERS Safety Report 10990562 (Version 7)
Quarter: 2015Q4

REPORT INFORMATION
  Report Type: Report from Study
  Country: TR (occurrence: TR)
  Receive Date: 20150406
  Receipt Date: 20151002
  Transmission Date: 20160304
  Serious: Yes (Death, Life-Threatening, Hospitalization)
  Sender: FDA-Public Use
  Company Number: TR-AMGEN-TURCT2015032654

PATIENT
  Age: 70 Year
  Sex: Male
  Weight: 73 kg

DRUGS (17)
  1. MELPHALAN [Suspect]
     Active Substance: MELPHALAN
     Indication: PLASMA CELL MYELOMA
     Dosage: 12 MG, PER CHEMO REGIM
     Route: 048
     Dates: start: 20141106, end: 20150315
  2. CONTRAMAL [Concomitant]
     Active Substance: TRAMADOL HYDROCHLORIDE
     Indication: BONE PAIN
     Dosage: 50 MG, QD
     Route: 048
     Dates: start: 20141113
  3. AVELOX [Concomitant]
     Active Substance: MOXIFLOXACIN HYDROCHLORIDE
     Indication: PNEUMONIA
     Dosage: 400 MG, QD
     Route: 048
     Dates: start: 20150320
  4. PAROL [Concomitant]
     Active Substance: ACETAMINOPHEN
     Indication: PNEUMONIA
     Dosage: 450 MG, QD
     Route: 048
     Dates: start: 20150320
  5. REQUIP [Concomitant]
     Active Substance: ROPINIROLE HYDROCHLORIDE
     Indication: PARKINSON^S DISEASE
     Dosage: 16 MG, BID
     Route: 048
     Dates: start: 2007
  6. REQUIP [Concomitant]
     Active Substance: ROPINIROLE HYDROCHLORIDE
     Dosage: 4 MG, QD
     Route: 048
     Dates: start: 2007
  7. VALTREX [Concomitant]
     Active Substance: VALACYCLOVIR HYDROCHLORIDE
     Indication: ANTIVIRAL PROPHYLAXIS
     Dosage: 500 MG, BID
     Route: 048
     Dates: start: 20141106
  8. PREDNISONE. [Suspect]
     Active Substance: PREDNISONE
     Indication: PLASMA CELL MYELOMA
     Dosage: 115 MG, PER CHEMO REGIM
     Route: 048
     Dates: start: 20141106, end: 20150315
  9. KYTRIL [Concomitant]
     Active Substance: GRANISETRON HYDROCHLORIDE
     Indication: NAUSEA
     Dosage: 3 MG, QD
     Route: 042
     Dates: start: 20150319, end: 20150319
  10. AZILECT [Concomitant]
     Active Substance: RASAGILINE MESYLATE
     Indication: PARKINSON^S DISEASE
     Dosage: 1 MG, QD
     Dates: start: 2007
  11. SINORETIK [Concomitant]
     Indication: HYPERTENSION
     Dosage: 1 UNIT, QD
     Route: 048
     Dates: start: 2010
  12. NUROFEN                            /00109201/ [Concomitant]
     Active Substance: IBUPROFEN
     Indication: PNEUMONIA
     Dosage: 230 MG, TID
     Route: 048
     Dates: start: 20150319
  13. PANTOPRAZOLE [Concomitant]
     Active Substance: PANTOPRAZOLE SODIUM
     Indication: PNEUMONIA
     Dosage: 40 MG, QD
     Route: 048
     Dates: start: 20150320
  14. CARFILZOMIB [Suspect]
     Active Substance: CARFILZOMIB
     Indication: PLASMA CELL MYELOMA
     Dosage: 36 MG/M2, PER CHEMO REGIM
     Route: 042
     Dates: start: 20141106, end: 20150319
  15. ARVELES [Concomitant]
     Active Substance: DEXKETOPROFEN
     Indication: BONE PAIN
     Dosage: 25 MG, BID
     Route: 048
     Dates: start: 20141113
  16. ILIADIN [Concomitant]
     Indication: PNEUMONIA
     Dosage: 10 UNK, QD
     Route: 045
     Dates: start: 20150319
  17. ZOMETA [Concomitant]
     Active Substance: ZOLEDRONIC ACID
     Indication: PROPHYLAXIS
     Dosage: 4 MG, QD
     Route: 042
     Dates: start: 20150319, end: 20150319

REACTIONS (2)
  - Respiratory failure [Recovered/Resolved]
  - Cardiac failure congestive [Fatal]

NARRATIVE: CASE EVENT DATE: 20150328
